FAERS Safety Report 8259837-3 (Version None)
Quarter: 2012Q2

REPORT INFORMATION
  Report Type: 
  Country: None (occurrence: None)
  Receive Date: 20120404
  Receipt Date: 20120326
  Transmission Date: 20120825
  Serious: Yes (Hospitalization, Other)
  Sender: FDA-Public Use
  Company Number: US-GLAXOSMITHKLINE-A0928366B

PATIENT
  Sex: Male

DRUGS (10)
  1. VITAMIN D [Concomitant]
     Route: 064
  2. CLINDAMYCIN [Concomitant]
     Route: 064
  3. FOLIC ACID [Concomitant]
     Route: 064
  4. VITAMIN AND MINERAL PRENATAL SUPPLEMENT W/ FOLIC ACID CAP [Concomitant]
     Route: 064
  5. PANTOPRAZOLE [Concomitant]
     Route: 064
  6. LAMOTRGINE [Suspect]
     Indication: BIPOLAR DISORDER
     Dosage: 150MG PER DAY
     Route: 064
     Dates: start: 20100601
  7. METROGEL [Concomitant]
     Route: 064
  8. TETRACYCLINE [Concomitant]
     Route: 064
  9. PENICILLIN [Concomitant]
     Route: 064
  10. ORTHO TRI-CYCLEN [Concomitant]
     Route: 064

REACTIONS (6)
  - TACHYPNOEA [None]
  - TACHYCARDIA [None]
  - APGAR SCORE LOW [None]
  - ACOUSTIC STIMULATION TESTS ABNORMAL [None]
  - FOETAL EXPOSURE DURING PREGNANCY [None]
  - RESPIRATORY DISTRESS [None]
